FAERS Safety Report 18160290 (Version 1)
Quarter: 2020Q3

REPORT INFORMATION
  Report Type: Spontaneous
  Country: CA (occurrence: CA)
  Receive Date: 20200817
  Receipt Date: 20200817
  Transmission Date: 20201103
  Serious: Yes (Hospitalization)
  Sender: FDA-Public Use
  Company Number: NVSC2020CA226422

PATIENT
  Age: 74 Year
  Sex: Female

DRUGS (6)
  1. SANDOSTATIN [Suspect]
     Active Substance: OCTREOTIDE ACETATE
  2. SANDOSTATIN LAR DEPOT [Suspect]
     Active Substance: OCTREOTIDE ACETATE
     Indication: NEUROENDOCRINE TUMOUR
     Dosage: 30 MG, QMO
     Route: 030
  3. SANDOSTATIN [Suspect]
     Active Substance: OCTREOTIDE ACETATE
     Indication: NEUROENDOCRINE TUMOUR
     Dosage: UNK
     Route: 058
  4. LUTATHERA [Suspect]
     Active Substance: LUTETIUM OXODOTREOTIDE LU-177
     Indication: PRODUCT USED FOR UNKNOWN INDICATION
     Dosage: UNK (SOLUTION FOR INJECTION)
     Route: 065
  5. SANDOSTATIN [Suspect]
     Active Substance: OCTREOTIDE ACETATE
  6. SANDOSTATIN LAR DEPOT [Suspect]
     Active Substance: OCTREOTIDE ACETATE
     Dosage: 60 MG, QMO
     Route: 030

REACTIONS (28)
  - Abdominal pain upper [Unknown]
  - Dehydration [Unknown]
  - Blood pressure systolic increased [Unknown]
  - Depression [Unknown]
  - Thrombosis [Unknown]
  - Faeces discoloured [Unknown]
  - Vomiting [Unknown]
  - Abdominal mass [Unknown]
  - Alopecia [Unknown]
  - Headache [Unknown]
  - Diarrhoea [Unknown]
  - Abdominal pain [Unknown]
  - Metastases to liver [Unknown]
  - Malaise [Unknown]
  - Asthenia [Unknown]
  - Gastrointestinal carcinoma [Unknown]
  - Second primary malignancy [Unknown]
  - Pain [Unknown]
  - Brain scan abnormal [Unknown]
  - Contusion [Unknown]
  - Myalgia [Unknown]
  - Fatigue [Unknown]
  - Neoplasm progression [Unknown]
  - Influenza [Unknown]
  - Nausea [Unknown]
  - Malignant neoplasm progression [Unknown]
  - Mucous stools [Unknown]
  - Metastases to lung [Unknown]
